FAERS Safety Report 7684056-9 (Version None)
Quarter: 2011Q3

REPORT INFORMATION
  Report Type: 
  Country: None (occurrence: None)
  Receive Date: 20110815
  Receipt Date: 20110805
  Transmission Date: 20111222
  Serious: Yes (Hospitalization)
  Sender: FDA-Public Use
  Company Number: GR-AMGEN-GRCSP2011039683

PATIENT
  Age: 62 Year
  Sex: Female

DRUGS (2)
  1. NATECAL D3 [Concomitant]
  2. PROLIA [Suspect]
     Indication: OSTEOPOROSIS
     Dosage: UNK
     Dates: start: 20110730

REACTIONS (7)
  - BACK PAIN [None]
  - DEHYDRATION [None]
  - PAIN IN EXTREMITY [None]
  - DIARRHOEA [None]
  - HYPOTENSION [None]
  - SYNCOPE [None]
  - MUSCULOSKELETAL PAIN [None]
